FAERS Safety Report 8479866-4 (Version None)
Quarter: 2012Q2

REPORT INFORMATION
  Report Type: 
  Country: None (occurrence: None)
  Receive Date: 20120629
  Receipt Date: 20120619
  Transmission Date: 20120825
  Serious: Yes (Other)
  Sender: FDA-Public Use
  Company Number: FR-CELGENEUS-056-FK228-12063269

PATIENT

DRUGS (5)
  1. DOXORUBICIN HCL [Concomitant]
     Indication: T-CELL LYMPHOMA
     Route: 065
  2. ROMIDEPSIN [Suspect]
     Indication: T-CELL LYMPHOMA
     Dosage: ESCALATING DOSES
     Route: 065
  3. CYCLOPHOSPHAMIDE [Concomitant]
     Indication: T-CELL LYMPHOMA
     Route: 065
  4. VINCRISTINE [Concomitant]
     Indication: T-CELL LYMPHOMA
     Route: 065
  5. PREDNISONE TAB [Concomitant]
     Indication: T-CELL LYMPHOMA
     Route: 065

REACTIONS (9)
  - T-CELL LYMPHOMA [None]
  - HAEMATOTOXICITY [None]
  - NEUTROPENIA [None]
  - GENERAL PHYSICAL HEALTH DETERIORATION [None]
  - ELECTROCARDIOGRAM QT PROLONGED [None]
  - MALAISE [None]
  - HEPATIC ENZYME INCREASED [None]
  - THROMBOCYTOPENIA [None]
  - DYSPEPSIA [None]
